FAERS Safety Report 10954327 (Version 2)
Quarter: 2015Q2

REPORT INFORMATION
  Report Type: Report from Study
  Country: CA (occurrence: CA)
  Receive Date: 20150325
  Receipt Date: 20150601
  Transmission Date: 20150821
  Serious: Yes (Hospitalization, Other)
  Sender: FDA-Public Use
  Company Number: CA-BAYER-2015-028928

PATIENT
  Age: 55 Year
  Sex: Male

DRUGS (12)
  1. STIVARGA [Suspect]
     Active Substance: REGORAFENIB
     Indication: COLORECTAL CANCER METASTATIC
     Dosage: 160 MG, QD
     Route: 048
     Dates: start: 201503, end: 201504
  2. ASPIRIN. [Concomitant]
     Active Substance: ASPIRIN
  3. STIVARGA [Suspect]
     Active Substance: REGORAFENIB
     Indication: COLORECTAL CANCER METASTATIC
     Dosage: 160 MG, QD
     Route: 048
     Dates: start: 20150218, end: 2015
  4. DIGOXIN. [Concomitant]
     Active Substance: DIGOXIN
  5. RABEPRAZOLE [Concomitant]
     Active Substance: RABEPRAZOLE
  6. ZOPICLON [Concomitant]
     Active Substance: ZOPICLONE
  7. MAGNESIUM [Concomitant]
     Active Substance: MAGNESIUM
  8. ALDACTONE [Concomitant]
     Active Substance: SPIRONOLACTONE
  9. ROSUVASTATIN [Concomitant]
     Active Substance: ROSUVASTATIN
  10. METOPROLOL [Concomitant]
     Active Substance: METOPROLOL
  11. MORPHIN [Concomitant]
     Active Substance: MORPHINE
  12. COUMADIN [Concomitant]
     Active Substance: WARFARIN SODIUM

REACTIONS (11)
  - Abdominal pain upper [Unknown]
  - Weight decreased [Not Recovered/Not Resolved]
  - Dehydration [Unknown]
  - Decreased appetite [Not Recovered/Not Resolved]
  - Hypersomnia [Not Recovered/Not Resolved]
  - Lung neoplasm [Not Recovered/Not Resolved]
  - Hypophagia [Not Recovered/Not Resolved]
  - Fatigue [Not Recovered/Not Resolved]
  - Hepatic neoplasm [Not Recovered/Not Resolved]
  - Headache [Unknown]
  - Viral infection [None]

NARRATIVE: CASE EVENT DATE: 201502
